FAERS Safety Report 17393154 (Version 4)
Quarter: 2020Q2

REPORT INFORMATION
  Report Type: Report from Study
  Country: None (occurrence: AU)
  Receive Date: 20200207
  Receipt Date: 20200529
  Transmission Date: 20200713
  Serious: Yes (Other)
  Sender: FDA-Public Use
  Company Number: AU-ABBVIE-20K-008-3263518-00

PATIENT
  Age: 67 Year
  Sex: Male

DRUGS (2)
  1. LUCRIN DEPOT [Suspect]
     Active Substance: LEUPROLIDE ACETATE
     Route: 030
     Dates: start: 20191205
  2. LUCRIN DEPOT [Suspect]
     Active Substance: LEUPROLIDE ACETATE
     Indication: PROSTATE CANCER
     Route: 030
     Dates: start: 20170209

REACTIONS (5)
  - Gastrointestinal disorder [Not Recovered/Not Resolved]
  - Bone cancer [Not Recovered/Not Resolved]
  - Psoriatic arthropathy [Unknown]
  - Incorrect dose administered [Unknown]
  - Lymphoma [Not Recovered/Not Resolved]

NARRATIVE: CASE EVENT DATE: 20200505
